FAERS Safety Report 7260400-1 (Version None)
Quarter: 2011Q1

REPORT INFORMATION
  Report Type: 
  Country: None (occurrence: None)
  Receive Date: 20110130
  Receipt Date: 20101118
  Transmission Date: 20110831
  Serious: No
  Sender: FDA-Public Use
  Company Number: US-ABBOTT-10P-163-0686587-00

PATIENT
  Age: 51 Year
  Sex: Female

DRUGS (8)
  1. MENOPAUSE MEDICATION [Concomitant]
     Indication: MENOPAUSE
  2. LEVOTHYROXINE SODIUM [Concomitant]
     Indication: HYPOTHYROIDISM
  3. GAMMAGUARD INFUSIONS [Concomitant]
     Indication: IMMUNOSUPPRESSION
  4. NEURONTIN [Concomitant]
     Indication: FIBROMYALGIA
  5. FLEXERIL [Concomitant]
     Indication: TENDON PAIN
  6. HUMIRA [Suspect]
     Indication: PSORIATIC ARTHROPATHY
     Dates: start: 20100901
  7. UTODLAC [Concomitant]
     Indication: PAIN
  8. UTODLAC [Concomitant]
     Indication: MUSCULOSKELETAL STIFFNESS

REACTIONS (2)
  - MOUTH ULCERATION [None]
  - LIP BLISTER [None]
